FAERS Safety Report 13728962 (Version 5)
Quarter: 2018Q1

REPORT INFORMATION
  Report Type: Report from Study
  Country: None (occurrence: CA)
  Receive Date: 20170707
  Receipt Date: 20180301
  Transmission Date: 20180508
  Serious: Yes (Other)
  Sender: FDA-Public Use
  Company Number: CA-ABBVIE-17P-028-2026240-00

PATIENT
  Age: 44 Year
  Sex: Female
  Weight: 75 kg

DRUGS (4)
  1. HUMIRA [Suspect]
     Active Substance: ADALIMUMAB
     Route: 058
     Dates: start: 20171021
  2. COSENTYX [Suspect]
     Active Substance: SECUKINUMAB
     Indication: CARDIOMYOPATHY
     Route: 065
     Dates: start: 2017, end: 2017
  3. HUMIRA [Suspect]
     Active Substance: ADALIMUMAB
     Indication: PSORIATIC ARTHROPATHY
     Route: 058
     Dates: start: 20160912, end: 20170616
  4. COSENTYX [Suspect]
     Active Substance: SECUKINUMAB
     Indication: EJECTION FRACTION DECREASED

REACTIONS (7)
  - Infarction [Not Recovered/Not Resolved]
  - Drug ineffective [Not Recovered/Not Resolved]
  - Ejection fraction decreased [Recovered/Resolved]
  - Adverse drug reaction [Unknown]
  - Cardiac failure congestive [Unknown]
  - Malaise [Unknown]
  - Headache [Not Recovered/Not Resolved]

NARRATIVE: CASE EVENT DATE: 201612
